FAERS Safety Report 7086318-5 (Version None)
Quarter: 2010Q4

REPORT INFORMATION
  Report Type: 
  Country: None (occurrence: None)
  Receive Date: 20101105
  Receipt Date: 20101025
  Transmission Date: 20110411
  Serious: Yes (Hospitalization)
  Sender: FDA-Public Use
  Company Number: US-ELI_LILLY_AND_COMPANY-US201010006341

PATIENT
  Sex: Female

DRUGS (16)
  1. PROZAC [Suspect]
     Dosage: 80 MG, DAILY (1/D)
  2. PROZAC [Suspect]
     Dosage: 60 MG, DAILY (1/D)
     Dates: start: 20100601
  3. BETASERON [Concomitant]
     Indication: MULTIPLE SCLEROSIS RELAPSE
     Dosage: UNK, UNK
     Route: 058
     Dates: start: 19940204, end: 20020210
  4. BETASERON [Concomitant]
     Dosage: 4 MIU, QOD
     Route: 058
     Dates: start: 20081212, end: 20090316
  5. BETASERON [Concomitant]
     Dosage: 2 MIU, QOD
     Route: 058
     Dates: start: 20090319
  6. BETASERON [Concomitant]
     Dosage: 2 MIU, UNKNOWN
     Route: 058
     Dates: end: 20100131
  7. BETASERON [Concomitant]
     Dosage: 4 MIU, QOD
     Route: 058
     Dates: start: 20100206, end: 20100330
  8. BETASERON [Concomitant]
     Dosage: 2 MIU, QOD
     Route: 058
     Dates: start: 20100505, end: 20100601
  9. BACLOFEN [Concomitant]
  10. ZANAFLEX [Concomitant]
  11. KLONOPIN [Concomitant]
  12. TYLENOL                                 /SCH/ [Concomitant]
     Indication: ARTHRITIS
  13. TEGRETOL [Concomitant]
     Dates: end: 20100601
  14. COPAXONE [Concomitant]
     Dates: start: 20020305, end: 20050305
  15. COPAXONE [Concomitant]
     Dates: start: 20050601, end: 20081123
  16. REBIF [Concomitant]
     Dates: start: 20050306, end: 20050504

REACTIONS (11)
  - BLOOD SODIUM DECREASED [None]
  - CONSTIPATION [None]
  - DEPRESSION [None]
  - HEADACHE [None]
  - HYPOAESTHESIA [None]
  - INTERVERTEBRAL DISC PROTRUSION [None]
  - MULTIPLE SCLEROSIS RELAPSE [None]
  - NAUSEA [None]
  - PARAESTHESIA [None]
  - SUICIDAL IDEATION [None]
  - VISUAL IMPAIRMENT [None]
